FAERS Safety Report 8033671-1 (Version None)
Quarter: 2011Q4

REPORT INFORMATION
  Report Type: 
  Country: None (occurrence: None)
  Receive Date: 20111223
  Receipt Date: 20111216
  Transmission Date: 20120403
  Serious: Yes (Other)
  Sender: FDA-Public Use
  Company Number: 2011SP051923

PATIENT
  Age: 73 Year
  Sex: Male

DRUGS (2)
  1. ROCURONIUM BROMIDE [Suspect]
     Indication: NEUROMUSCULAR BLOCKING THERAPY
     Dosage: IV
     Route: 042
  2. PROPOFOL [Concomitant]

REACTIONS (3)
  - MOUTH HAEMORRHAGE [None]
  - PROCEDURAL COMPLICATION [None]
  - PURPURA [None]
